FAERS Safety Report 9401882 (Version 1)
Quarter: 2013Q3

REPORT INFORMATION
  Report Type: Spontaneous
  Country: ES (occurrence: ES)
  Receive Date: 20130716
  Receipt Date: 20130716
  Transmission Date: 20140515
  Serious: Yes (Other)
  Sender: FDA-Public Use
  Company Number: ES-MERCK-1307ESP003334

PATIENT
  Age: 65 Year
  Sex: Male

DRUGS (3)
  1. PEGINTRON [Suspect]
     Indication: HEPATITIS C
     Dosage: 150 MICROGRAM, QW
     Route: 058
     Dates: start: 20130329
  2. RIBAVIRIN [Suspect]
     Indication: HEPATITIS C
     Dosage: (3-0-3)
     Route: 048
     Dates: start: 20130329
  3. TELAPREVIR [Suspect]
     Indication: HEPATITIS C
     Route: 048
     Dates: start: 20130329, end: 20130610

REACTIONS (3)
  - Xerosis [Recovering/Resolving]
  - Urticaria [Recovering/Resolving]
  - Eczema [Recovering/Resolving]
